FAERS Safety Report 6999880-5 (Version None)
Quarter: 2010Q3

REPORT INFORMATION
  Report Type: 
  Country: None (occurrence: None)
  Receive Date: 20100920
  Receipt Date: 20100217
  Transmission Date: 20110219
  Serious: Yes (Other)
  Sender: FDA-Public Use
  Company Number: US-ASTRAZENECA-2009UW20816

PATIENT
  Sex: Female
  Weight: 88 kg

DRUGS (5)
  1. SEROQUEL [Suspect]
     Dosage: 25 TO 100 MG
     Route: 048
     Dates: start: 20061109
  2. OXAPROZIN [Concomitant]
     Dosage: 600 MG TWO TABLET DAILY
     Route: 048
     Dates: start: 20061109
  3. PROZAC [Concomitant]
     Dates: start: 20071018
  4. XANAX [Concomitant]
     Indication: ANXIETY
     Dates: start: 20071018
  5. LISINOPRIL AND HYDROCHLOROTHIAZIDE [Concomitant]
     Dosage: 10-12.5 MG DAILY
     Route: 048
     Dates: start: 20081216

REACTIONS (3)
  - DIABETES MELLITUS [None]
  - KETOACIDOSIS [None]
  - PANCREATITIS [None]
